FAERS Safety Report 20784330 (Version 1)
Quarter: 2022Q2

REPORT INFORMATION
  Report Type: Spontaneous
  Country: US (occurrence: US)
  Receive Date: 20220504
  Receipt Date: 20220504
  Transmission Date: 20220721
  Serious: No
  Sender: FDA-Public Use
  Company Number: US-PFIZER INC-202101098058

PATIENT
  Age: 31 Year
  Sex: Female
  Weight: 58.97 kg

DRUGS (3)
  1. SOLU-CORTEF [Suspect]
     Active Substance: HYDROCORTISONE SODIUM SUCCINATE
     Indication: Secondary adrenocortical insufficiency
     Dosage: 15MG IN THE MORNING ON THE RIGHT LEG THEN 5MG IN THE EVENING ON THE LEFT LEG
  2. SOLU-CORTEF [Suspect]
     Active Substance: HYDROCORTISONE SODIUM SUCCINATE
     Dosage: SPLITS IT TO 4 INJECTIONS IN A DAY (10MG EACH LEG)
  3. SOLU-CORTEF [Suspect]
     Active Substance: HYDROCORTISONE SODIUM SUCCINATE
     Dosage: CONSTANTLY DELIVERED BY CANNULA VIA OMNI POD; 100MG, RECONSTITUTES TO 2ML
     Dates: start: 202105

REACTIONS (11)
  - Skin reaction [Not Recovered/Not Resolved]
  - Drug hypersensitivity [Not Recovered/Not Resolved]
  - Erythema [Not Recovered/Not Resolved]
  - Pruritus [Not Recovered/Not Resolved]
  - Rash [Not Recovered/Not Resolved]
  - Urticaria [Not Recovered/Not Resolved]
  - Skin infection [Unknown]
  - Skin disorder [Unknown]
  - Insomnia [Unknown]
  - Wrong technique in product usage process [Unknown]
  - Off label use [Unknown]

NARRATIVE: CASE EVENT DATE: 20210101
